FAERS Safety Report 23371533 (Version 1)
Quarter: 2024Q1

REPORT INFORMATION
  Report Type: Report from Study
  Country: FR (occurrence: None)
  Receive Date: 20240105
  Receipt Date: 20240105
  Transmission Date: 20240409
  Serious: Yes (Death)
  Sender: FDA-Public Use
  Company Number: 2024A004284

PATIENT
  Age: 65 Year
  Sex: Male

DRUGS (1)
  1. DURVALUMAB [Suspect]
     Active Substance: DURVALUMAB
     Indication: Small cell lung cancer

REACTIONS (6)
  - Depression [Fatal]
  - Memory impairment [Fatal]
  - Peripheral sensory neuropathy [Fatal]
  - Quadriparesis [Fatal]
  - Respiratory failure [Fatal]
  - Neurotoxicity [Fatal]
